FAERS Safety Report 17859768 (Version 5)
Quarter: 2022Q4

REPORT INFORMATION
  Report Type: Spontaneous
  Country: US (occurrence: US)
  Receive Date: 20200604
  Receipt Date: 20221128
  Transmission Date: 20230112
  Serious: No
  Sender: FDA-Public Use
  Company Number: US-PFIZER INC-2020218858

PATIENT
  Age: 46 Year
  Sex: Female

DRUGS (10)
  1. IBRANCE [Suspect]
     Active Substance: PALBOCICLIB
     Indication: Hepatobiliary cancer
     Dosage: 125 MG, CYCLIC(FOR 21 DAYS ON, 7 DAYS OFF ON A 28 DAY CYCLE)
     Route: 048
     Dates: start: 20220420
  2. IBRANCE [Suspect]
     Active Substance: PALBOCICLIB
     Indication: Breast neoplasm
     Dosage: 100 MG, CYCLIC (ONCE A DAY X 21 DAYS )
  3. IBRANCE [Suspect]
     Active Substance: PALBOCICLIB
     Indication: Metastatic neoplasm
  4. FERROUS SULFATE [Concomitant]
     Active Substance: FERROUS SULFATE
  5. LETROZOLE [Concomitant]
     Active Substance: LETROZOLE
  6. LORAZEPAM [Concomitant]
     Active Substance: LORAZEPAM
  7. METHYLPREDNISOLONE [Concomitant]
     Active Substance: METHYLPREDNISOLONE
  8. MORPHINE SULFATE [Concomitant]
     Active Substance: MORPHINE SULFATE
     Dosage: UNK MG
  9. PREDNISONE [Concomitant]
     Active Substance: PREDNISONE
     Dosage: UNK MG
  10. PROCHLORPERAZINE MALEATE [Concomitant]
     Active Substance: PROCHLORPERAZINE MALEATE

REACTIONS (23)
  - Lip blister [Unknown]
  - Cheilitis [Unknown]
  - Rash [Unknown]
  - Blister [Unknown]
  - Pyrexia [Not Recovered/Not Resolved]
  - Night sweats [Unknown]
  - Diarrhoea [Unknown]
  - Confusional state [Unknown]
  - Depression [Unknown]
  - Weight decreased [Unknown]
  - Muscle atrophy [Unknown]
  - Nausea [Not Recovered/Not Resolved]
  - Dizziness [Unknown]
  - Stomatitis [Unknown]
  - Headache [Unknown]
  - Fatigue [Unknown]
  - Pain [Unknown]
  - Loss of personal independence in daily activities [Unknown]
  - Illness [Unknown]
  - Anxiety [Unknown]
  - Crying [Unknown]
  - Hot flush [Not Recovered/Not Resolved]
  - Candida infection [Not Recovered/Not Resolved]
